FAERS Safety Report 12850721 (Version 1)
Quarter: 2016Q4

REPORT INFORMATION
  Report Type: Spontaneous
  Country: US (occurrence: US)
  Receive Date: 20161014
  Receipt Date: 20161014
  Transmission Date: 20170207
  Serious: Yes (Other)
  Sender: FDA-Public Use
  Company Number: US-SA-2016SA186768

PATIENT
  Age: 61 Year
  Sex: Female

DRUGS (2)
  1. ALEMTUZUMAB [Suspect]
     Active Substance: ALEMTUZUMAB
     Indication: NEUROMYELITIS OPTICA SPECTRUM DISORDER
     Route: 041
  2. ALEMTUZUMAB [Suspect]
     Active Substance: ALEMTUZUMAB
     Indication: NEUROMYELITIS OPTICA SPECTRUM DISORDER
     Route: 041

REACTIONS (10)
  - Disease progression [Unknown]
  - Vomiting [Unknown]
  - Visual impairment [Unknown]
  - Weight decreased [Unknown]
  - Neuromyelitis optica spectrum disorder [Unknown]
  - Clostridium difficile colitis [Unknown]
  - Nausea [Unknown]
  - Urosepsis [Unknown]
  - Decreased appetite [Unknown]
  - Off label use [Unknown]
